FAERS Safety Report 8044818-5 (Version None)
Quarter: 2012Q1

REPORT INFORMATION
  Report Type: 
  Country: None (occurrence: None)
  Receive Date: 20120113
  Receipt Date: 20120112
  Transmission Date: 20120608
  Serious: Yes (Hospitalization)
  Sender: FDA-Public Use
  Company Number: US-ROCHE-1018532

PATIENT
  Sex: Male
  Weight: 78.9 kg

DRUGS (21)
  1. ALBUTEROL [Concomitant]
     Indication: HYPERTENSION
  2. HYDRALAZINE HCL [Concomitant]
     Indication: ATRIAL FIBRILLATION
  3. COUMADIN [Concomitant]
     Indication: ANXIETY
  4. VERSED [Concomitant]
     Indication: PAIN
  5. HUMIRA [Concomitant]
  6. COZAAR [Concomitant]
  7. ACIDOPHILUS [Concomitant]
     Dosage: 1 CAPSULE
  8. NIFEDIPINE [Concomitant]
     Indication: HYPERTENSION
  9. IRON COMPLEX [Concomitant]
     Dosage: 11-6 QD
     Route: 048
  10. FENTANYL [Concomitant]
     Indication: PAIN
  11. LEVOXYL [Concomitant]
     Indication: HYPOTHYROIDISM
  12. JANUMET [Concomitant]
     Indication: DIABETES MELLITUS
  13. VYTORIN [Concomitant]
     Indication: BLOOD CHOLESTEROL INCREASED
  14. METHOTREXATE [Concomitant]
     Indication: ARTHRITIS
  15. ASPIRIN [Concomitant]
     Indication: ASTHMA
  16. NEXIUM [Concomitant]
     Indication: ANAEMIA
  17. DIGOXIN [Concomitant]
     Indication: CARDIAC FAILURE CONGESTIVE
  18. RANIBIZUMAB [Suspect]
     Indication: DIABETIC RETINAL OEDEMA
     Route: 050
     Dates: start: 20110606
  19. XANAX [Concomitant]
     Indication: PAIN
  20. COENZYME Q10 [Concomitant]
  21. PROCARDIA [Concomitant]
     Indication: HYPERTENSION

REACTIONS (2)
  - RENAL FAILURE [None]
  - CARDIAC FAILURE CONGESTIVE [None]
